FAERS Safety Report 6401119-6 (Version None)
Quarter: 2009Q4

REPORT INFORMATION
  Report Type: 
  Country: None (occurrence: None)
  Receive Date: 20091015
  Receipt Date: 20091009
  Transmission Date: 20100525
  Serious: No
  Sender: FDA-Public Use
  Company Number: US-JNJFOC-20091004108

PATIENT
  Sex: Female
  Weight: 65.77 kg

DRUGS (9)
  1. DURAGESIC-100 [Suspect]
     Indication: PAIN
     Dosage: 100+100+100+100
     Route: 062
     Dates: start: 20090930
  2. PROTONIX [Concomitant]
     Indication: GASTRIC DISORDER
     Route: 048
  3. COLACE [Concomitant]
     Indication: CONSTIPATION
     Route: 048
  4. LEVOTHYROXINE SODIUM [Concomitant]
     Indication: THYROID DISORDER
     Route: 048
  5. ZETIA [Concomitant]
     Indication: BLOOD CHOLESTEROL
     Route: 048
  6. CYMBALTA [Concomitant]
     Indication: DEPRESSION
     Route: 048
  7. ATROVENT [Concomitant]
     Indication: HYPERSENSITIVITY
     Route: 055
  8. VITAMIN A [Concomitant]
     Indication: NUTRITIONAL SUPPORT
     Route: 048
  9. E VITAMIN [Concomitant]
     Indication: NUTRITIONAL SUPPORT
     Route: 048

REACTIONS (2)
  - DRUG INEFFECTIVE [None]
  - INAPPROPRIATE SCHEDULE OF DRUG ADMINISTRATION [None]
